FAERS Safety Report 19100162 (Version 1)
Quarter: 2021Q2

REPORT INFORMATION
  Report Type: Report from Study
  Country: CA (occurrence: CA)
  Receive Date: 20210407
  Receipt Date: 20210407
  Transmission Date: 20210717
  Serious: Yes (Hospitalization, Other)
  Sender: FDA-Public Use
  Company Number: CA-BEH-2021128832

PATIENT
  Age: 64 Year
  Sex: Female
  Weight: 58.5 kg

DRUGS (6)
  1. HAEMATE P [Suspect]
     Active Substance: ANTIHEMOPHILIC FACTOR HUMAN
     Dosage: 1048 INTERNATIONAL UNIT
     Route: 042
  2. HAEMATE P [Suspect]
     Active Substance: ANTIHEMOPHILIC FACTOR HUMAN
     Indication: VON WILLEBRAND^S DISEASE
     Dosage: 1048 INTERNATIONAL UNIT
     Route: 042
     Dates: start: 20210121
  3. HAEMATE P [Suspect]
     Active Substance: ANTIHEMOPHILIC FACTOR HUMAN
     Dosage: 1048 INTERNATIONAL UNIT
     Route: 042
  4. HAEMATE P [Suspect]
     Active Substance: ANTIHEMOPHILIC FACTOR HUMAN
     Dosage: 1048 INTERNATIONAL UNIT
     Route: 042
  5. HAEMATE P [Suspect]
     Active Substance: ANTIHEMOPHILIC FACTOR HUMAN
     Dosage: 1048 INTERNATIONAL UNIT
     Route: 042
  6. HAEMATE P [Suspect]
     Active Substance: ANTIHEMOPHILIC FACTOR HUMAN
     Indication: VON WILLEBRAND^S DISEASE
     Dosage: 1048 INTERNATIONAL UNIT
     Route: 042
     Dates: start: 20210121

REACTIONS (12)
  - Haemoglobin decreased [Unknown]
  - Dysphonia [Unknown]
  - Blood test abnormal [Unknown]
  - Aphonia [Unknown]
  - Poor venous access [Unknown]
  - Vein disorder [Unknown]
  - Infusion site injury [Unknown]
  - Dyspnoea [Unknown]
  - Pain in extremity [Recovered/Resolved]
  - Fatigue [Unknown]
  - Increased bronchial secretion [Unknown]
  - Infusion site haemorrhage [Unknown]

NARRATIVE: CASE EVENT DATE: 20210225
